FAERS Safety Report 21701352 (Version 1)
Quarter: 2022Q4

REPORT INFORMATION
  Report Type: Spontaneous
  Country: US (occurrence: None)
  Receive Date: 20221208
  Receipt Date: 20221208
  Transmission Date: 20230113
  Serious: Yes (Hospitalization, Disabling, Other)
  Sender: FDA-Public Use
  Company Number: None

PATIENT
  Age: 59 Year
  Sex: Female
  Weight: 67.5 kg

DRUGS (1)
  1. HALAVEN [Suspect]
     Active Substance: ERIBULIN MESYLATE
     Indication: Breast cancer metastatic
     Route: 042
     Dates: start: 20220616, end: 20220908

REACTIONS (6)
  - Muscular weakness [None]
  - Neuropathy peripheral [None]
  - Demyelination [None]
  - Neutrophil count decreased [None]
  - Sepsis [None]
  - Pneumonia [None]

NARRATIVE: CASE EVENT DATE: 20220901
